FAERS Safety Report 7667708-6 (Version None)
Quarter: 2011Q3

REPORT INFORMATION
  Report Type: 
  Country: None (occurrence: None)
  Receive Date: 20110806
  Receipt Date: 20110705
  Transmission Date: 20111222
  Serious: No
  Sender: FDA-Public Use
  Company Number: US-ABBOTT-11P-163-0836885-00

PATIENT
  Sex: Female
  Weight: 72.64 kg

DRUGS (5)
  1. DYAZIDE [Concomitant]
     Indication: HYPERTENSION
     Dosage: 37.5/25 MG ONCE DAILY
     Route: 048
  2. IMITREX [Concomitant]
     Indication: MIGRAINE
     Dosage: ONCE DAILY, AS REQUIRED
     Route: 048
  3. NIASPAN [Suspect]
     Indication: BLOOD CHOLESTEROL INCREASED
     Route: 048
     Dates: start: 20100901
  4. NEXIUM [Concomitant]
     Indication: GASTROOESOPHAGEAL REFLUX DISEASE
     Route: 048
  5. CELEBREX [Concomitant]
     Indication: ARTHRITIS
     Route: 048

REACTIONS (5)
  - FLUSHING [None]
  - FEELING HOT [None]
  - HYPERHIDROSIS [None]
  - PRURITUS GENERALISED [None]
  - GENERALISED ERYTHEMA [None]
